FAERS Safety Report 7435036-X (Version None)
Quarter: 2011Q2

REPORT INFORMATION
  Report Type: 
  Country: None (occurrence: None)
  Receive Date: 20110425
  Receipt Date: 20110412
  Transmission Date: 20111010
  Serious: Yes (Other)
  Sender: FDA-Public Use
  Company Number: PHHY2011US30879

PATIENT
  Sex: Male

DRUGS (7)
  1. HUMALOG [Concomitant]
  2. DIOVAN [Suspect]
     Dosage: 160 MG, QD
  3. CRESTOR [Concomitant]
  4. TOPROL-XL [Concomitant]
  5. TRAMADOL HCL [Concomitant]
  6. NIASPAN [Concomitant]
     Dosage: 2000 MG, UNK
  7. ASPIRIN [Concomitant]

REACTIONS (2)
  - DIABETES MELLITUS [None]
  - DISABILITY [None]
